FAERS Safety Report 18103549 (Version 3)
Quarter: 2020Q4

REPORT INFORMATION
  Report Type: Spontaneous
  Country: US (occurrence: US)
  Receive Date: 20200803
  Receipt Date: 20201008
  Transmission Date: 20210113
  Serious: Yes (Death)
  Sender: FDA-Public Use
  Company Number: US-CELGENEUS-USA-20200708543

PATIENT
  Age: 85 Year
  Sex: Female
  Weight: 50.85 kg

DRUGS (1)
  1. REVLIMID [Suspect]
     Active Substance: LENALIDOMIDE
     Indication: MYELODYSPLASTIC SYNDROME
     Dosage: 10 MILLIGRAM
     Route: 048
     Dates: start: 20200109, end: 20200520

REACTIONS (1)
  - Transformation to acute myeloid leukaemia [Fatal]

NARRATIVE: CASE EVENT DATE: 202005
